FAERS Safety Report 13901191 (Version 1)
Quarter: 2017Q3

REPORT INFORMATION
  Report Type: Spontaneous
  Country: CN (occurrence: CN)
  Receive Date: 20170824
  Receipt Date: 20170824
  Transmission Date: 20171127
  Serious: Yes (Life-Threatening, Other)
  Sender: FDA-Public Use
  Company Number: CN-SUN PHARMACEUTICAL INDUSTRIES LTD-2017R1-145994

PATIENT
  Age: 18 Year
  Sex: Male

DRUGS (4)
  1. DOCETAXEL. [Suspect]
     Active Substance: DOCETAXEL
     Indication: ALVEOLAR SOFT PART SARCOMA METASTATIC
     Dosage: ADMINISTERED INTRAVENOUSLY FOR 60 MIN EVERY 21 D FROM D 8; 2 CYCLES
     Route: 041
     Dates: start: 2015
  2. GEMCITABINE [Suspect]
     Active Substance: GEMCITABINE\GEMCITABINE HYDROCHLORIDE
     Indication: METASTASES TO LUNG
  3. DOCETAXEL. [Suspect]
     Active Substance: DOCETAXEL
     Indication: METASTASES TO LUNG
  4. GEMCITABINE [Suspect]
     Active Substance: GEMCITABINE\GEMCITABINE HYDROCHLORIDE
     Indication: ALVEOLAR SOFT PART SARCOMA METASTATIC
     Dosage: AT A FIXED DOSE RATE OF 900 MG/M2 BY INTRAVENOUS INFUSION FOR 90 MIN ON D 1 AND 8; 2 CYCLES
     Route: 041
     Dates: start: 2015

REACTIONS (2)
  - Disease progression [Unknown]
  - Drug resistance [Unknown]

NARRATIVE: CASE EVENT DATE: 2015
